FAERS Safety Report 25635568 (Version 1)
Quarter: 2025Q3

REPORT INFORMATION
  Report Type: Spontaneous
  Country: US (occurrence: US)
  Receive Date: 20250802
  Receipt Date: 20250802
  Transmission Date: 20251021
  Serious: Yes (Hospitalization, Other)
  Sender: ZYDUS PHARM
  Company Number: US-CADILA HEALTHCARE LIMITED-US-ZYDUS-126564

PATIENT

DRUGS (4)
  1. IVERMECTIN [Interacting]
     Active Substance: IVERMECTIN
     Indication: Product used for unknown indication
     Route: 065
  2. REGORAFENIB [Interacting]
     Active Substance: REGORAFENIB
     Indication: Osteosarcoma
     Route: 065
  3. DOCETAXEL [Concomitant]
     Active Substance: DOCETAXEL
     Indication: Osteosarcoma
     Route: 065
  4. GEMCITABINE [Concomitant]
     Active Substance: GEMCITABINE
     Indication: Osteosarcoma
     Route: 065

REACTIONS (11)
  - Altered state of consciousness [Unknown]
  - Encephalopathy [Unknown]
  - Decreased appetite [Unknown]
  - Fatigue [Unknown]
  - Nausea [Recovering/Resolving]
  - Neurotoxicity [Unknown]
  - Presyncope [Unknown]
  - Seizure [Unknown]
  - Somnolence [Recovering/Resolving]
  - Drug interaction [Unknown]
  - Intentional product misuse [Unknown]
